FAERS Safety Report 9718903 (Version 1)
Quarter: 2013Q4

REPORT INFORMATION
  Report Type: Spontaneous
  Country: US (occurrence: US)
  Receive Date: 20131127
  Receipt Date: 20131127
  Transmission Date: 20140711
  Serious: No
  Sender: FDA-Public Use
  Company Number: US-PFIZER INC-2013339799

PATIENT
  Age: 5 Decade
  Sex: Male
  Weight: 67.12 kg

DRUGS (8)
  1. CHANTIX [Suspect]
     Indication: SMOKING CESSATION THERAPY
     Dosage: 0.5 MG, 1X/DAY
     Route: 048
  2. CHANTIX [Suspect]
     Dosage: 1 MG, 2X/DAY
     Route: 048
  3. TRAZODONE [Concomitant]
     Dosage: UNK, AS NEEDED
  4. XANAX [Concomitant]
     Dosage: UNK
  5. ADVAIR [Concomitant]
     Indication: CHRONIC OBSTRUCTIVE PULMONARY DISEASE
     Dosage: UNK
  6. SPIRIVA [Concomitant]
     Indication: CHRONIC OBSTRUCTIVE PULMONARY DISEASE
     Dosage: UNK
  7. CITALOPRAM [Concomitant]
     Indication: DEPRESSION
     Dosage: UNK
  8. LATUDA [Concomitant]
     Indication: MOOD SWINGS
     Dosage: 40 MG, UNK

REACTIONS (3)
  - Irritability [Unknown]
  - Hostility [Unknown]
  - Depressed mood [Unknown]
